FAERS Safety Report 8597912-4 (Version None)
Quarter: 2012Q3

REPORT INFORMATION
  Report Type: 
  Country: None (occurrence: None)
  Receive Date: 20120816
  Receipt Date: 20120807
  Transmission Date: 20120928
  Serious: Yes (Hospitalization, Disabling)
  Sender: FDA-Public Use
  Company Number: US-ASTELLAS-2012US004497

PATIENT

DRUGS (7)
  1. VESICARE [Suspect]
     Indication: HYPERTONIC BLADDER
     Dosage: 10 MG, UID/QD
     Route: 048
     Dates: start: 20100101
  2. CITALOPRAM [Concomitant]
     Indication: DEPRESSION
     Dosage: 40 MG, UID/QD
     Route: 048
     Dates: start: 20020101
  3. BUMETANIDE [Concomitant]
     Indication: FLUID RETENTION
     Dosage: 2 MG, BID
     Route: 048
     Dates: start: 20070101
  4. SYNTHROID [Concomitant]
     Indication: THYROID DISORDER
     Dosage: 0.5 MG, UID/QD
     Route: 048
     Dates: start: 19920101
  5. MIRAPEX [Concomitant]
     Indication: RESTLESS LEGS SYNDROME
     Dosage: 1 MG, UID/QD
     Route: 048
  6. CLONAZEPAM [Concomitant]
     Indication: PANIC ATTACK
  7. CLONAZEPAM [Concomitant]
     Indication: CONVULSION
     Dosage: 2 MG, UID/QD
     Route: 048
     Dates: start: 20020101

REACTIONS (2)
  - CHEST PAIN [None]
  - PAIN [None]
